FAERS Safety Report 9011304 (Version 2)
Quarter: 2013Q1

REPORT INFORMATION
  Report Type: Spontaneous
  Country: US (occurrence: US)
  Receive Date: 20130109
  Receipt Date: 20130324
  Transmission Date: 20140127
  Serious: Yes (Death)
  Sender: FDA-Public Use
  Company Number: US-PFIZER INC-2013006261

PATIENT
  Age: 35 Year
  Sex: Female

DRUGS (5)
  1. GABAPENTIN [Suspect]
     Dosage: UNK
     Route: 048
  2. DIAZEPAM [Suspect]
     Dosage: UNK
     Route: 048
  3. FLUOXETINE HYDROCHLORIDE [Suspect]
     Dosage: UNK
     Route: 048
  4. METOPROLOL [Suspect]
     Dosage: UNK
     Route: 048
  5. LAMOTRIGINE [Suspect]
     Dosage: UNK

REACTIONS (1)
  - Completed suicide [Fatal]
